FAERS Safety Report 9557442 (Version 1)
Quarter: 2013Q3

REPORT INFORMATION
  Report Type: Spontaneous
  Country: US (occurrence: None)
  Receive Date: 20130726
  Receipt Date: 20130726
  Transmission Date: 20140515
  Serious: Yes (Hospitalization)
  Sender: FDA-Public Use
  Company Number: UTC-022107

PATIENT
  Age: 59 Year
  Sex: Female
  Weight: 78.4 kg

DRUGS (2)
  1. REMODULIN [Suspect]
     Dosage: 0.044 UG/KG 1 IN 1 MIN
     Route: 041
     Dates: start: 20120121
  2. REVATIO (SILDENAFIL CITRATE)(UNKNOWN) [Concomitant]

REACTIONS (3)
  - Hypotension [None]
  - Dizziness [None]
  - Diarrhoea [None]
